FAERS Safety Report 6849734-X (Version None)
Quarter: 2010Q3

REPORT INFORMATION
  Report Type: 
  Country: None (occurrence: None)
  Receive Date: 20100716
  Receipt Date: 20071004
  Transmission Date: 20110219
  Serious: Yes (Other)
  Sender: FDA-Public Use
  Company Number: US-PFIZER INC-2007084302

PATIENT
  Sex: Female
  Weight: 73.636 kg

DRUGS (2)
  1. CHANTIX [Suspect]
     Indication: SMOKING CESSATION THERAPY
     Dates: start: 20070910, end: 20070918
  2. PREMARIN [Concomitant]

REACTIONS (3)
  - ABNORMAL DREAMS [None]
  - DYSARTHRIA [None]
  - SUICIDAL IDEATION [None]
